FAERS Safety Report 4890003-5 (Version None)
Quarter: 2006Q1

REPORT INFORMATION
  Report Type: 
  Country: None (occurrence: None)
  Receive Date: 20060123
  Receipt Date: 20060111
  Transmission Date: 20060701
  Serious: Yes (Other)
  Sender: FDA-Public Use
  Company Number: 2005155564

PATIENT
  Age: 4 Month
  Sex: Female
  Weight: 6.3504 kg

DRUGS (1)
  1. BENADRYL [Suspect]
     Indication: POISONING DELIBERATE
     Dosage: UNSPECIFIED AMOUNT DAILY, 5 DAYS A WEEK, ORAL
     Route: 048
     Dates: start: 20050801, end: 20051005

REACTIONS (3)
  - DRUG LEVEL INCREASED [None]
  - LOSS OF CONSCIOUSNESS [None]
  - VOMITING [None]
